FAERS Safety Report 6245180-0 (Version None)
Quarter: 2009Q2

REPORT INFORMATION
  Report Type: 
  Country: None (occurrence: None)
  Receive Date: 20090625
  Receipt Date: 20090616
  Transmission Date: 20091009
  Serious: Yes (Hospitalization)
  Sender: FDA-Public Use
  Company Number: PHHO2009CH06677

PATIENT
  Sex: Male
  Weight: 80 kg

DRUGS (4)
  1. RAD 666 RAD+TAB [Suspect]
     Indication: RENAL TRANSPLANT
     Dosage: 5.25 MG/DAY
     Route: 048
     Dates: start: 20090321
  2. MYFORTIC [Concomitant]
     Indication: RENAL TRANSPLANT
     Dosage: 1080 MG, BID
     Route: 048
     Dates: start: 20081217
  3. SANDIMMUNE [Concomitant]
     Indication: RENAL TRANSPLANT
     Dosage: OPEN-LABEL
     Route: 048
     Dates: start: 20081217, end: 20090403
  4. SPIRICORT [Concomitant]
     Indication: RENAL TRANSPLANT
     Dosage: 20 MG
     Route: 048
     Dates: start: 20081217

REACTIONS (2)
  - BLOOD CREATININE INCREASED [None]
  - KIDNEY TRANSPLANT REJECTION [None]
